FAERS Safety Report 6634673-X (Version None)
Quarter: 2010Q1

REPORT INFORMATION
  Report Type: 
  Country: None (occurrence: None)
  Receive Date: 20100315
  Receipt Date: 20100308
  Transmission Date: 20100710
  Serious: Yes (Other)
  Sender: FDA-Public Use
  Company Number: DE-TEVA-226766ISR

PATIENT
  Age: 49 Year
  Sex: Male

DRUGS (3)
  1. CISPLATIN [Suspect]
  2. ETOPOSIDE [Concomitant]
  3. BLEOMYCIN [Concomitant]

REACTIONS (1)
  - AORTIC THROMBOSIS [None]
